FAERS Safety Report 9803188 (Version 2)
Quarter: 2017Q1

REPORT INFORMATION
  Report Type: Spontaneous
  Country: US (occurrence: US)
  Receive Date: 20140108
  Receipt Date: 20170323
  Transmission Date: 20170429
  Serious: No
  Sender: FDA-Public Use
  Company Number: US-PFIZER INC-2014001180

PATIENT
  Age: 53 Year
  Sex: Female

DRUGS (3)
  1. FLAGYL [Suspect]
     Active Substance: METRONIDAZOLE\METRONIDAZOLE HYDROCHLORIDE
     Dosage: UNK
  2. NEOMYCIN-POLY HC [Suspect]
     Active Substance: HYDROCORTISONE\NEOMYCIN\POLYMYXIN B
     Dosage: UNK
  3. CORTISPORIN [Suspect]
     Active Substance: BACITRACIN ZINC\HYDROCORTISONE\NEOMYCIN SULFATE\POLYMYXIN B SULFATE
     Dosage: UNK

REACTIONS (1)
  - Drug hypersensitivity [Unknown]
